FAERS Safety Report 21322461 (Version 1)
Quarter: 2022Q3

REPORT INFORMATION
  Report Type: Spontaneous
  Country: US (occurrence: None)
  Receive Date: 20220909
  Receipt Date: 20220909
  Transmission Date: 20221027
  Serious: Yes (Death)
  Sender: FDA-Public Use
  Company Number: None

PATIENT
  Age: 45 Year
  Sex: Male

DRUGS (1)
  1. ENHERTU [Suspect]
     Active Substance: FAM-TRASTUZUMAB DERUXTECAN-NXKI
     Indication: Non-small cell lung cancer stage IV
     Dosage: FREQUENCY : EVERY THREE WEEKS;?
     Route: 041
     Dates: start: 20220713, end: 20220803

REACTIONS (3)
  - Acute respiratory failure [None]
  - Hypoxia [None]
  - Pneumonitis [None]

NARRATIVE: CASE EVENT DATE: 20220803
